FAERS Safety Report 11767615 (Version 1)
Quarter: 2015Q4

REPORT INFORMATION
  Report Type: Spontaneous
  Country: US (occurrence: US)
  Receive Date: 20151123
  Receipt Date: 20151123
  Transmission Date: 20160304
  Serious: Yes (Death, Other)
  Sender: FDA-Public Use
  Company Number: US-GLAXOSMITHKLINE-A0972075A

PATIENT
  Age: 61 Year
  Sex: Female
  Weight: 90.8 kg

DRUGS (19)
  1. AMBIEN [Concomitant]
     Active Substance: ZOLPIDEM TARTRATE
     Dosage: AT BEDTIME
  2. COREG [Concomitant]
     Active Substance: CARVEDILOL
  3. METHADONE [Concomitant]
     Active Substance: METHADONE HYDROCHLORIDE
  4. NEXIUM [Concomitant]
     Active Substance: ESOMEPRAZOLE MAGNESIUM
  5. METFORMIN [Concomitant]
     Active Substance: METFORMIN HYDROCHLORIDE
  6. BENLYSTA [Suspect]
     Active Substance: BELIMUMAB
     Indication: SYSTEMIC LUPUS ERYTHEMATOSUS
     Dosage: UNK UNK, UNK
     Route: 042
     Dates: start: 20120326
  7. LEVEMIR [Concomitant]
     Active Substance: INSULIN DETEMIR
  8. CALCIUM [Concomitant]
     Active Substance: CALCIUM
  9. GABAPENTIN. [Concomitant]
     Active Substance: GABAPENTIN
  10. SPIRONOLACTONE. [Concomitant]
     Active Substance: SPIRONOLACTONE
  11. ZANTAC [Concomitant]
     Active Substance: RANITIDINE HYDROCHLORIDE
  12. ASPIRIN. [Concomitant]
     Active Substance: ASPIRIN
  13. SAVELLA [Concomitant]
     Active Substance: MILNACIPRAN HYDROCHLORIDE
  14. MIRAPEX [Concomitant]
     Active Substance: PRAMIPEXOLE DIHYDROCHLORIDE
     Dosage: AT BEDTIME
  15. PLAQUENIL [Concomitant]
     Active Substance: HYDROXYCHLOROQUINE SULFATE
  16. XANAX [Concomitant]
     Active Substance: ALPRAZOLAM
  17. MICARDIS [Concomitant]
     Active Substance: TELMISARTAN
  18. NORCO [Concomitant]
     Active Substance: ACETAMINOPHEN\HYDROCODONE BITARTRATE
     Indication: PAIN
  19. FOLIC ACID. [Concomitant]
     Active Substance: FOLIC ACID

REACTIONS (5)
  - Urticaria [Recovered/Resolved]
  - Feeling hot [Recovered/Resolved]
  - Throat irritation [Recovered/Resolved]
  - Death [Fatal]
  - Throat tightness [Recovered/Resolved]

NARRATIVE: CASE EVENT DATE: 20120326
